FAERS Safety Report 13472293 (Version 2)
Quarter: 2017Q2

REPORT INFORMATION
  Report Type: Report from Study
  Country: CN (occurrence: CN)
  Receive Date: 20170424
  Receipt Date: 20170427
  Transmission Date: 20170830
  Serious: Yes (Other)
  Sender: FDA-Public Use
  Company Number: PHHY2016CN173751

PATIENT
  Age: 23 Year
  Sex: Male

DRUGS (48)
  1. MYFORTIC [Suspect]
     Active Substance: MYCOPHENOLATE SODIUM
     Indication: RENAL TRANSPLANT
     Dosage: 1440 MG, QD
     Route: 065
     Dates: start: 20161106, end: 20161110
  2. CICLOSPORIN [Suspect]
     Active Substance: CYCLOSPORINE
     Dosage: 350 MG, QD
     Route: 065
     Dates: start: 20161111
  3. METHYLPREDNISOLONE. [Suspect]
     Active Substance: METHYLPREDNISOLONE
     Dosage: 240 MG, QD
     Route: 065
     Dates: start: 20161109, end: 20161109
  4. SULFAMETHOXAZOLE [Concomitant]
     Active Substance: SULFAMETHOXAZOLE
     Indication: INFECTION
     Dosage: 240 MG, QD
     Route: 048
     Dates: start: 20161115
  5. CASPOFUNGIN ACETATE. [Concomitant]
     Active Substance: CASPOFUNGIN ACETATE
     Indication: INFECTION
     Dosage: 50 MG, QD
     Route: 042
     Dates: start: 20161106, end: 20161115
  6. LEUCOGEN [Concomitant]
     Active Substance: LEUCOGEN
     Indication: PLATELET DISORDER
     Dosage: 40 MG, TID
     Route: 048
     Dates: start: 20161111, end: 20161115
  7. MAGNESIUM SULFATE. [Concomitant]
     Active Substance: MAGNESIUM SULFATE
     Indication: ELECTROLYTE IMBALANCE
     Dosage: 1.6 ML, PRN
     Route: 042
     Dates: start: 20161106, end: 20161106
  8. CEFOPERAZONE SODIUM AND SULBACTAM SODIUM [Concomitant]
     Active Substance: CEFOPERAZONE SODIUM\SULBACTAM SODIUM
     Indication: INFECTION
     Dosage: 2 G, QD
     Route: 042
     Dates: start: 20161111, end: 20161115
  9. METHYLPREDNISOLONE. [Suspect]
     Active Substance: METHYLPREDNISOLONE
     Indication: PRODUCT USED FOR UNKNOWN INDICATION
     Dosage: 660 MG, QD
     Route: 065
     Dates: start: 20161106, end: 20161106
  10. METHYLPREDNISOLONE. [Suspect]
     Active Substance: METHYLPREDNISOLONE
     Dosage: 40 MG, QD
     Route: 065
     Dates: start: 20161110, end: 20161115
  11. PROMETHAZINE [Concomitant]
     Active Substance: PROMETHAZINE\PROMETHAZINE HYDROCHLORIDE
     Indication: SEDATION
     Dosage: 2 MG, TID
     Route: 048
     Dates: start: 20161107, end: 20161108
  12. BERBERINE HYDROCHLORIDE [Concomitant]
     Active Substance: BERBERINE
     Indication: BACTERIAL INFECTION
     Dosage: 300 MG, TID
     Route: 048
     Dates: start: 20161110, end: 20161112
  13. ENEMA (SODIUM PHOSPHATE, DIBASIC\SODIUM PHOSPHATE, MONOBASIC) [Concomitant]
     Active Substance: SODIUM PHOSPHATE, DIBASIC\SODIUM PHOSPHATE, MONOBASIC
     Indication: CONSTIPATION
     Dosage: 20 ML, PRN
     Route: 054
     Dates: start: 20161109, end: 20161109
  14. ENEMA (SODIUM PHOSPHATE, DIBASIC\SODIUM PHOSPHATE, MONOBASIC) [Concomitant]
     Active Substance: SODIUM PHOSPHATE, DIBASIC\SODIUM PHOSPHATE, MONOBASIC
     Dosage: 20 ML, PRN
     Route: 054
     Dates: start: 20161112, end: 20161112
  15. ALPROSTADIL. [Concomitant]
     Active Substance: ALPROSTADIL
     Indication: CARDIOVASCULAR DISORDER
     Dosage: 20 UG, QD
     Route: 042
     Dates: start: 20161107, end: 20161115
  16. MAGNESIUM SULFATE. [Concomitant]
     Active Substance: MAGNESIUM SULFATE
     Dosage: 3.2 ML, TID
     Route: 042
     Dates: start: 20161107, end: 20161107
  17. IMIPENEM AND CILASTATIN [Concomitant]
     Active Substance: CILASTATIN SODIUM\IMIPENEM
     Indication: INFECTION
     Dosage: 500 MG, QD
     Route: 048
     Dates: start: 20161106, end: 20161111
  18. SODIUM BICARBONATE. [Concomitant]
     Active Substance: SODIUM BICARBONATE
     Indication: ELECTROLYTE IMBALANCE
     Dosage: 250 ML, PRN
     Route: 042
     Dates: start: 20161106, end: 20161106
  19. HEPATITIS B IMMUNE GLOBULIN [Concomitant]
     Active Substance: HUMAN HEPATITIS B VIRUS IMMUNE GLOBULIN
     Indication: INFECTION PROPHYLAXIS
     Dosage: 400 IU, PRN
     Route: 030
     Dates: start: 20161107, end: 20161107
  20. DEXAMETHASONE. [Concomitant]
     Active Substance: DEXAMETHASONE
     Indication: PROPHYLAXIS
     Dosage: 10 MG, PRN
     Route: 030
     Dates: start: 20161106, end: 20161106
  21. DOPAMINE [Concomitant]
     Active Substance: DOPAMINE\DOPAMINE HYDROCHLORIDE
     Indication: BLOOD PRESSURE ABNORMAL
     Dosage: 100 MG, ALWAYS
     Route: 042
     Dates: start: 20161107, end: 20161109
  22. CICLOSPORIN [Suspect]
     Active Substance: CYCLOSPORINE
     Indication: RENAL TRANSPLANT
     Dosage: 300 MG, QD
     Route: 065
     Dates: start: 20161107, end: 20161110
  23. TALCID [Concomitant]
     Active Substance: HYDROTALCITE
     Indication: ANTACID THERAPY
     Dosage: 1000 MG, QD
     Route: 048
     Dates: start: 20161107
  24. MARZULENE-S [Concomitant]
     Active Substance: SODIUM GUALENATE
     Indication: PROPHYLAXIS
     Dosage: 670 MG, TID
     Route: 048
     Dates: start: 20161110, end: 20161115
  25. SODIUM BICARBONATE. [Concomitant]
     Active Substance: SODIUM BICARBONATE
     Indication: ELECTROLYTE IMBALANCE
     Dosage: 1000 MG, BID
     Route: 048
     Dates: start: 20161115
  26. FUROSEMIDE. [Concomitant]
     Active Substance: FUROSEMIDE
     Indication: POLYURIA
     Dosage: 80 MG, PRN
     Route: 042
     Dates: start: 20161106, end: 20161106
  27. FUROSEMIDE. [Concomitant]
     Active Substance: FUROSEMIDE
     Indication: PROPHYLAXIS
     Dosage: 40 MG, PRN
     Route: 042
     Dates: start: 20161107, end: 20161107
  28. MYFORTIC [Suspect]
     Active Substance: MYCOPHENOLATE SODIUM
     Indication: PROPHYLAXIS
     Dosage: 720 MG, QD
     Route: 065
     Dates: start: 20161111
  29. PREDNISONE. [Suspect]
     Active Substance: PREDNISONE
     Indication: PRODUCT USED FOR UNKNOWN INDICATION
     Dosage: 20 MG, QD
     Route: 065
     Dates: start: 20161115
  30. AMIKACIN [Concomitant]
     Active Substance: AMIKACIN
     Indication: PROPHYLAXIS
     Dosage: 400 MG, PRN
     Route: 061
     Dates: start: 20161106, end: 20161106
  31. DILTIAZEM HYDROCHLORIDE. [Concomitant]
     Active Substance: DILTIAZEM HYDROCHLORIDE
     Indication: CARDIOVASCULAR DISORDER
     Dosage: 30 MG, BID
     Route: 048
     Dates: start: 20161110, end: 20161111
  32. METOCLOPRAMIDE. [Concomitant]
     Active Substance: METOCLOPRAMIDE
     Indication: PROPHYLAXIS
     Dosage: 10 ML, PRN
     Route: 030
     Dates: start: 20161109, end: 20161109
  33. ALPRAZOLAM. [Concomitant]
     Active Substance: ALPRAZOLAM
     Indication: SEDATION
     Dosage: 0.4 MG, QD
     Route: 048
     Dates: start: 20161107, end: 20161115
  34. SODIUM PHOSPHATE [Concomitant]
     Active Substance: SODIUM PHOSPHATE
     Indication: GASTRIC LAVAGE
     Dosage: 133 ML, PRN
     Route: 054
     Dates: start: 20161106, end: 20161106
  35. POTASSIUM CHLORIDE. [Concomitant]
     Active Substance: POTASSIUM CHLORIDE
     Indication: ELECTROLYTE IMBALANCE
     Dosage: 20 ML, PRN
     Route: 048
     Dates: start: 20161111, end: 20161111
  36. VITAMIN B6 [Concomitant]
     Active Substance: PYRIDOXINE HYDROCHLORIDE
     Indication: ANAEMIA
     Dosage: 20 MG, TID
     Route: 048
     Dates: start: 20161107, end: 20161115
  37. BASILIXIMAB [Suspect]
     Active Substance: BASILIXIMAB
     Indication: RENAL TRANSPLANT
     Dosage: 20 MG, QD
     Route: 065
     Dates: start: 20161106, end: 20161106
  38. DIAZEPAM. [Concomitant]
     Active Substance: DIAZEPAM
     Indication: SEDATION
  39. TALCID [Concomitant]
     Active Substance: HYDROTALCITE
     Indication: PROPHYLAXIS
  40. CALCITRIOL. [Concomitant]
     Active Substance: CALCITRIOL
     Indication: PROPHYLAXIS
     Dosage: 0.25 UG, QD
     Route: 048
     Dates: start: 20161110, end: 20161115
  41. MANNITOL. [Concomitant]
     Active Substance: MANNITOL
     Indication: PROPHYLAXIS
     Dosage: 125 ML, PRN
     Route: 042
     Dates: start: 20161106, end: 20161106
  42. HEPARIN SODIUM. [Concomitant]
     Active Substance: HEPARIN SODIUM
     Indication: PROPHYLAXIS
     Dosage: 12500 IU, W2D2
     Route: 042
     Dates: start: 20161108, end: 20161115
  43. GANCICLOVIR. [Concomitant]
     Active Substance: GANCICLOVIR
     Indication: VIRAL INFECTION
     Dosage: 500 MG, TID
     Route: 048
     Dates: start: 20161115
  44. CALCIUM GLUCONATE. [Concomitant]
     Active Substance: CALCIUM GLUCONATE
     Indication: PROPHYLAXIS
     Dosage: 3 G, QD
     Route: 042
     Dates: start: 20161107, end: 20161108
  45. TEICOPLANIN [Concomitant]
     Active Substance: TEICOPLANIN
     Indication: INFECTION
     Dosage: 200 MG, QD
     Route: 042
     Dates: start: 20161107, end: 20161115
  46. BASILIXIMAB [Suspect]
     Active Substance: BASILIXIMAB
     Dosage: 20 MG, QD
     Route: 065
     Dates: start: 20161110, end: 20161110
  47. METHYLPREDNISOLONE. [Suspect]
     Active Substance: METHYLPREDNISOLONE
     Dosage: 540 MG, QD
     Route: 065
     Dates: start: 20161107, end: 20161108
  48. ESOMEPRAZOLE MAGNESIUM. [Concomitant]
     Active Substance: ESOMEPRAZOLE MAGNESIUM
     Indication: PROPHYLAXIS
     Dosage: 40 MG, QD
     Route: 042
     Dates: start: 20161107, end: 20161115

REACTIONS (10)
  - Lymphocyte count decreased [Unknown]
  - Red blood cells urine positive [Unknown]
  - Blood urea increased [Unknown]
  - Diarrhoea [Recovering/Resolving]
  - Leukopenia [Recovering/Resolving]
  - Incision site pain [Recovering/Resolving]
  - Blood glucose increased [Unknown]
  - Abdominal pain [Recovering/Resolving]
  - Haemoglobin decreased [Unknown]
  - C-reactive protein increased [Unknown]

NARRATIVE: CASE EVENT DATE: 20161107
